FAERS Safety Report 8540011-8 (Version None)
Quarter: 2012Q3

REPORT INFORMATION
  Report Type: 
  Country: None (occurrence: None)
  Receive Date: 20120713
  Receipt Date: 20120627
  Transmission Date: 20120928
  Serious: No
  Sender: FDA-Public Use
  Company Number: 1324095

PATIENT
  Age: 83 Year
  Sex: Male
  Weight: 54 kg

DRUGS (4)
  1. (OXYGEN) [Concomitant]
  2. PRECEDEX [Suspect]
     Indication: SEDATION
     Dosage: 1 MCG/KG, INTRAVENOUS DRIP, 0.2-0.4 MCG/KG/H, INTRAVENOUS DRIP
     Route: 041
     Dates: start: 20090714, end: 20090714
  3. PRECEDEX [Suspect]
     Indication: SEDATION
     Dosage: 1 MCG/KG, INTRAVENOUS DRIP, 0.2-0.4 MCG/KG/H, INTRAVENOUS DRIP
     Route: 041
     Dates: start: 20090714, end: 20090714
  4. (LIDOCAINE HYDROCHLORIDE/EPINEPHRINE) [Concomitant]

REACTIONS (1)
  - GLOSSOPTOSIS [None]
